FAERS Safety Report 23496769 (Version 1)
Quarter: 2024Q1

REPORT INFORMATION
  Report Type: Spontaneous
  Country: US (occurrence: None)
  Receive Date: 20240207
  Receipt Date: 20240207
  Transmission Date: 20240410
  Serious: No
  Sender: FDA-Public Use
  Company Number: US-ROCHE-3366599

PATIENT
  Age: 70 Year
  Sex: Female

DRUGS (1)
  1. XOLAIR [Suspect]
     Active Substance: OMALIZUMAB
     Indication: Asthma
     Dosage: MONTHLY DOSE FOR ASTHMA PER DOSING TABLE ON WEIGHT/IGE. PATIENT ONLY RECEIVED ONE DOSE ON MAY 15 AND
     Route: 065

REACTIONS (2)
  - Transient ischaemic attack [Unknown]
  - Off label use [Unknown]
